FAERS Safety Report 20189160 (Version 1)
Quarter: 2021Q4

REPORT INFORMATION
  Report Type: Spontaneous
  Country: US (occurrence: None)
  Receive Date: 20211215
  Receipt Date: 20211215
  Transmission Date: 20220303
  Serious: Yes (Life-Threatening)
  Sender: FDA-Public Use
  Company Number: None

PATIENT
  Age: 53 Year
  Sex: Male
  Weight: 72.6 kg

DRUGS (1)
  1. BARICITINIB [Suspect]
     Active Substance: BARICITINIB
     Indication: COVID-19
     Dosage: FREQUENCY : DAILY;?
     Route: 048

REACTIONS (3)
  - Oxygen saturation decreased [None]
  - Fibrin D dimer increased [None]
  - Pulmonary embolism [None]

NARRATIVE: CASE EVENT DATE: 20211209
